FAERS Safety Report 6458041-9 (Version None)
Quarter: 2009Q4

REPORT INFORMATION
  Report Type: 
  Country: None (occurrence: None)
  Receive Date: 20091125
  Receipt Date: 20091112
  Transmission Date: 20100525
  Serious: Yes (Congenital Anomaly)
  Sender: FDA-Public Use
  Company Number: DE-SANOFI-AVENTIS-2009SA002256

PATIENT
  Sex: Female

DRUGS (5)
  1. AMLODIPINE (SALT NOT SPECIFIED) [Suspect]
     Indication: DRUG USE FOR UNKNOWN INDICATION
     Route: 065
  2. HYDROXYCHLOROQUINE [Suspect]
     Indication: DRUG USE FOR UNKNOWN INDICATION
     Route: 065
  3. PREDNISONE TAB [Suspect]
     Indication: DRUG USE FOR UNKNOWN INDICATION
     Route: 065
  4. LABETALOL HCL [Suspect]
     Indication: DRUG USE FOR UNKNOWN INDICATION
     Route: 065
  5. RILMENIDINE [Suspect]
     Indication: DRUG USE FOR UNKNOWN INDICATION
     Route: 065

REACTIONS (5)
  - AMNIOTIC BAND SYNDROME [None]
  - DRUG EXPOSURE DURING PREGNANCY [None]
  - ECTOPIA CORDIS [None]
  - INTRA-UTERINE DEATH [None]
  - NEURAL TUBE DEFECT [None]
